FAERS Safety Report 20327673 (Version 9)
Quarter: 2022Q2

REPORT INFORMATION
  Report Type: Report from Study
  Country: CN (occurrence: None)
  Receive Date: 20220112
  Receipt Date: 20220624
  Transmission Date: 20220721
  Serious: Yes (Hospitalization)
  Sender: FDA-Public Use
  Company Number: CN-ROCHE-2884855

PATIENT
  Age: 62 Year
  Sex: Male
  Weight: 55 kg

DRUGS (52)
  1. ATEZOLIZUMAB [Suspect]
     Active Substance: ATEZOLIZUMAB
     Indication: Bile duct cancer
     Dosage: DOSE LAST STUDY DRUG ADMIN PRIOR AE WAS 1200 MG?MOST RECENT DOSE OF STUDY DRUG PRIOR TO SAE WAS RECE
     Route: 041
     Dates: start: 20210803
  2. BEVACIZUMAB [Suspect]
     Active Substance: BEVACIZUMAB
     Indication: Bile duct cancer
     Dosage: MOST RECENT DOSE OF STUDY DRUG PRIOR TO SAE WAS RECEIVED ON 17/NOV/2021 AND 18/NOV/2021.
     Route: 042
     Dates: start: 20210803
  3. CISPLATIN [Suspect]
     Active Substance: CISPLATIN
     Indication: Bile duct cancer
     Dosage: ON DAYS 1 AND 8 OF EACH 21-DAY CYCLE FOR CYCLES 1-8?MOST RECENT DOSE (870 MG) OF STUDY DRUG PRIOR TO
     Route: 042
     Dates: start: 20210803
  4. GEMCITABINE [Suspect]
     Active Substance: GEMCITABINE
     Indication: Bile duct cancer
     Dosage: ON DAYS 1 AND 8 OF EACH 21-DAY CYCLE FOR CYCLES 1-8. MOST RECENT DOSE (1373 MG) OF STUDY DRUG PRIOR
     Route: 042
     Dates: start: 20210803
  5. CEFOPERAZONE SODIUM\SULBACTAM SODIUM [Concomitant]
     Active Substance: CEFOPERAZONE SODIUM\SULBACTAM SODIUM
     Dates: start: 20210804
  6. CEFIXIME [Concomitant]
     Active Substance: CEFIXIME
     Dates: start: 20210805, end: 20210807
  7. CEFIXIME [Concomitant]
     Active Substance: CEFIXIME
     Dates: start: 20211220, end: 20211224
  8. CEFIXIME [Concomitant]
     Active Substance: CEFIXIME
     Dates: start: 20220118
  9. CEFIXIME [Concomitant]
     Active Substance: CEFIXIME
     Dates: start: 20211214, end: 20211214
  10. CEFOPERAZONE\SULBACTAM [Concomitant]
     Active Substance: CEFOPERAZONE\SULBACTAM
     Indication: Infection
     Dates: start: 20210804, end: 20210805
  11. PALONOSETRON HYDROCHLORIDE [Concomitant]
     Active Substance: PALONOSETRON HYDROCHLORIDE
     Indication: Vomiting
     Dates: start: 20210803, end: 20210803
  12. PALONOSETRON HYDROCHLORIDE [Concomitant]
     Active Substance: PALONOSETRON HYDROCHLORIDE
     Dates: start: 20211117, end: 20211117
  13. PALONOSETRON HYDROCHLORIDE [Concomitant]
     Active Substance: PALONOSETRON HYDROCHLORIDE
     Dates: start: 20211129, end: 20211129
  14. PROMETHAZINE HYDROCHLORIDE [Concomitant]
     Active Substance: PROMETHAZINE HYDROCHLORIDE
     Indication: Hypersensitivity
     Dates: start: 20210803, end: 20210803
  15. PROMETHAZINE HYDROCHLORIDE [Concomitant]
     Active Substance: PROMETHAZINE HYDROCHLORIDE
     Indication: Vomiting
     Dates: start: 20211117, end: 20211117
  16. PROMETHAZINE HYDROCHLORIDE [Concomitant]
     Active Substance: PROMETHAZINE HYDROCHLORIDE
     Dates: start: 20211129, end: 20211129
  17. OMEPRAZOLE SODIUM [Concomitant]
     Active Substance: OMEPRAZOLE SODIUM
     Dates: start: 20210803, end: 20210803
  18. OMEPRAZOLE SODIUM [Concomitant]
     Active Substance: OMEPRAZOLE SODIUM
     Dates: start: 20211117, end: 20211117
  19. OMEPRAZOLE SODIUM [Concomitant]
     Active Substance: OMEPRAZOLE SODIUM
     Dates: start: 20211129, end: 20211129
  20. GLUTATHIONE REDUCED [Concomitant]
     Dates: start: 20210803, end: 20210803
  21. GLUTATHIONE REDUCED [Concomitant]
     Dates: start: 20211117, end: 20211117
  22. GLUTATHIONE REDUCED [Concomitant]
     Dates: start: 20211129, end: 20211129
  23. VITAMIN B6 [Concomitant]
     Active Substance: PYRIDOXINE HYDROCHLORIDE
     Indication: Vomiting
     Dates: start: 20210803, end: 20210803
  24. VITAMIN B6 [Concomitant]
     Active Substance: PYRIDOXINE HYDROCHLORIDE
     Dates: start: 20211117, end: 20211117
  25. VITAMIN B6 [Concomitant]
     Active Substance: PYRIDOXINE HYDROCHLORIDE
     Dates: start: 20211129, end: 20211129
  26. LEUCOGEN TABLETS [Concomitant]
     Indication: Platelet count decreased
     Dates: start: 20210804, end: 20210804
  27. LEUCOGEN TABLETS [Concomitant]
     Indication: Leukopenia
     Dates: start: 20210805, end: 20210816
  28. LEUCOGEN TABLETS [Concomitant]
     Indication: White blood cell count decreased
     Dates: start: 20211031, end: 20211115
  29. LEUCOGEN TABLETS [Concomitant]
     Dates: start: 20211116
  30. LEUCOGEN TABLETS [Concomitant]
     Dates: start: 20211212, end: 20211213
  31. LEUCOGEN TABLETS [Concomitant]
     Dates: start: 20211214, end: 20220107
  32. LEUCOGEN TABLETS [Concomitant]
     Dates: start: 20220117, end: 20220125
  33. LEUCOGEN TABLETS [Concomitant]
     Dates: start: 20220126, end: 20220214
  34. LEUCOGEN TABLETS [Concomitant]
     Dates: start: 20220215
  35. RABEPRAZOLE SODIUM [Concomitant]
     Active Substance: RABEPRAZOLE SODIUM
     Dates: start: 2018
  36. UREA [Concomitant]
     Active Substance: UREA
     Indication: Dermatitis
     Dates: start: 2018
  37. URSODIOL [Concomitant]
     Active Substance: URSODIOL
     Dates: start: 2018
  38. INSULIN ASPART 30 [Concomitant]
     Indication: Diabetes mellitus
     Dates: start: 2018
  39. PIOGLITAZONE [Concomitant]
     Active Substance: PIOGLITAZONE
     Indication: Diabetes mellitus
     Dates: start: 2018, end: 20210825
  40. ACETAMINOPHEN [Concomitant]
     Active Substance: ACETAMINOPHEN
     Dates: start: 20210804, end: 20210805
  41. PANCREATIN [Concomitant]
     Active Substance: PANCRELIPASE
     Dates: start: 2018
  42. METFORMIN HYDROCHLORIDE [Concomitant]
     Active Substance: METFORMIN HYDROCHLORIDE
     Dates: start: 20210825
  43. METHYLCOBALAMIN [Concomitant]
     Active Substance: METHYLCOBALAMIN
     Indication: Neuropathy peripheral
     Route: 048
  44. METHYLCOBALAMIN [Concomitant]
     Active Substance: METHYLCOBALAMIN
     Dates: start: 20211215
  45. VITAMIN B1 [Concomitant]
     Active Substance: THIAMINE HYDROCHLORIDE
     Route: 048
     Dates: start: 20211215
  46. MOXIFLOXACIN [Concomitant]
     Active Substance: MOXIFLOXACIN
     Indication: Pneumonia
     Dates: start: 20210103
  47. METOCLOPRAMIDE DIHYDROCHLORIDE [Concomitant]
     Dates: start: 20211117, end: 20211117
  48. LEVAMLODIPINE BESYLATE [Concomitant]
     Active Substance: LEVAMLODIPINE BESYLATE
     Dates: start: 20211220
  49. ADALAT [Concomitant]
     Active Substance: NIFEDIPINE
     Indication: Hypertension
     Dates: start: 20211214
  50. AMBROXOL HYDROCHLORIDE [Concomitant]
     Active Substance: AMBROXOL HYDROCHLORIDE
     Dates: start: 20220105
  51. MOXIFLOXACIN [Concomitant]
     Active Substance: MOXIFLOXACIN
     Dates: start: 20220118
  52. POTASSIUM CHLORIDE [Concomitant]
     Active Substance: POTASSIUM CHLORIDE
     Dates: start: 20220117

REACTIONS (2)
  - Pyrexia [Recovered/Resolved]
  - Sepsis [Recovered/Resolved]

NARRATIVE: CASE EVENT DATE: 20210804
